FAERS Safety Report 20906282 (Version 1)
Quarter: 2022Q2

REPORT INFORMATION
  Report Type: Report from Study
  Country: CA (occurrence: CA)
  Receive Date: 20220602
  Receipt Date: 20220602
  Transmission Date: 20220721
  Serious: Yes (Other)
  Sender: FDA-Public Use
  Company Number: CA-TAKEDA-2022TUS036298

PATIENT
  Age: 30 Year
  Sex: Male

DRUGS (1)
  1. VEDOLIZUMAB [Suspect]
     Active Substance: VEDOLIZUMAB
     Indication: Crohn^s disease
     Dosage: 300 MILLIGRAM
     Route: 042
     Dates: start: 20200612

REACTIONS (6)
  - Rectal haemorrhage [Unknown]
  - Flatulence [Unknown]
  - Rectal discharge [Unknown]
  - Diarrhoea [Unknown]
  - Defaecation urgency [Unknown]
  - Arthralgia [Unknown]
